FAERS Safety Report 5345783-1 (Version None)
Quarter: 2007Q2

REPORT INFORMATION
  Report Type: 
  Country: None (occurrence: None)
  Receive Date: 20070605
  Receipt Date: 20070601
  Transmission Date: 20071010
  Serious: Yes (Hospitalization)
  Sender: FDA-Public Use
  Company Number: JP-ASTRAZENECA-2007SE03144

PATIENT
  Age: 81 Year
  Sex: Female

DRUGS (4)
  1. BLOPRESS TABLETS 8 [Suspect]
     Indication: HYPERTENSION
     Route: 048
     Dates: end: 20070501
  2. BENET TABLETS 2.5MG [Suspect]
     Route: 048
  3. LIPITOR [Suspect]
     Route: 048
  4. STOGAR [Suspect]
     Route: 048

REACTIONS (1)
  - LIVER DISORDER [None]
